FAERS Safety Report 4556723-7 (Version None)
Quarter: 2005Q1

REPORT INFORMATION
  Report Type: 
  Country: None (occurrence: None)
  Receive Date: 20050114
  Receipt Date: 20050103
  Transmission Date: 20050727
  Serious: Yes (Other)
  Sender: FDA-Public Use
  Company Number: 2005002357

PATIENT
  Sex: Female
  Weight: 59.8748 kg

DRUGS (6)
  1. NEURONTIN [Suspect]
     Indication: PAIN
     Dosage: 1800 MG (300 MG, 1 IN 4 HR), ORAL
     Route: 048
     Dates: start: 20020101
  2. CANNABIS (CANNABIS) [Suspect]
     Indication: PAIN
     Dosage: INHALATION
     Route: 055
  3. LOSARTAN POTASSIUM [Concomitant]
  4. PILOCARPINE HYDROCHLORIDE [Concomitant]
  5. LEVOTHYROXINE SODIUM [Concomitant]
  6. ZOLPIDEM TARTRATE [Concomitant]

REACTIONS (8)
  - ABNORMAL BEHAVIOUR [None]
  - DISTURBANCE IN ATTENTION [None]
  - DRUG INEFFECTIVE FOR UNAPPROVED INDICATION [None]
  - INCREASED APPETITE [None]
  - MEDICAL DEVICE COMPLICATION [None]
  - MEMORY IMPAIRMENT [None]
  - UNEVALUABLE EVENT [None]
  - WEIGHT INCREASED [None]
